FAERS Safety Report 4491147-2 (Version None)
Quarter: 2004Q3

REPORT INFORMATION
  Report Type: 
  Country: None (occurrence: None)
  Receive Date: 20040927
  Receipt Date: 20040802
  Transmission Date: 20050211
  Serious: No
  Sender: FDA-Public Use
  Company Number: USA040874279

PATIENT
  Age: 37 Year
  Sex: Male

DRUGS (3)
  1. STRATTERA [Suspect]
     Indication: ATTENTION DEFICIT/HYPERACTIVITY DISORDER
     Dosage: 40 MG/ 1 DAY
  2. ZYPREXA [Concomitant]
  3. PAXIL [Concomitant]

REACTIONS (2)
  - DYSURIA [None]
  - URINARY HESITATION [None]
